FAERS Safety Report 5479388-9 (Version None)
Quarter: 2007Q4

REPORT INFORMATION
  Report Type: 
  Country: None (occurrence: None)
  Receive Date: 20071008
  Receipt Date: 20071001
  Transmission Date: 20080405
  Serious: Yes (Other)
  Sender: FDA-Public Use
  Company Number: US-BAYER-200712159BWH

PATIENT
  Age: 70 Year
  Sex: Male

DRUGS (14)
  1. NEXAVAR [Suspect]
     Indication: RENAL CELL CARCINOMA STAGE UNSPECIFIED
     Dosage: UNIT DOSE: 200 MG
     Route: 048
     Dates: start: 20070820
  2. NEXAVAR [Suspect]
     Dosage: UNIT DOSE: 200 MG
     Route: 048
     Dates: start: 20070806
  3. NEXAVAR [Suspect]
     Dosage: UNIT DOSE: 200 MG
     Route: 048
     Dates: start: 20070710
  4. NEXAVAR [Suspect]
     Dosage: TOTAL DAILY DOSE: 800 MG  UNIT DOSE: 200 MG
     Route: 048
     Dates: start: 20070706, end: 20070709
  5. HUMALOG [Concomitant]
     Indication: DIABETES MELLITUS
  6. HUMULIN 70/30 [Concomitant]
     Dosage: TOTAL DAILY DOSE: 50 U
     Route: 058
  7. LASIX [Concomitant]
     Dosage: TOTAL DAILY DOSE: 240 MG
     Dates: start: 20070401
  8. LIPITOR [Concomitant]
     Dates: start: 20030101
  9. COREG [Concomitant]
     Dosage: TOTAL DAILY DOSE: 6.25 MG
     Dates: start: 20070501
  10. LEVOTHYROXINE SODIUM [Concomitant]
     Dates: start: 20030101
  11. ASPIRIN [Concomitant]
     Dates: start: 20030101
  12. ASCORBIC ACID [Concomitant]
     Dosage: TOTAL DAILY DOSE: 1000 MG
     Dates: start: 20070501
  13. POTASSIUM CHLORIDE [Concomitant]
     Dates: start: 20070401
  14. STOOL SOFTENER [Concomitant]

REACTIONS (18)
  - ABASIA [None]
  - ABDOMINAL DISCOMFORT [None]
  - ABDOMINAL DISTENSION [None]
  - ABDOMINAL PAIN [None]
  - ANAEMIA [None]
  - ANOREXIA [None]
  - ASTHENIA [None]
  - BLOOD GLUCOSE DECREASED [None]
  - BLOOD GLUCOSE INCREASED [None]
  - DIARRHOEA [None]
  - DYSPNOEA [None]
  - GENERAL PHYSICAL HEALTH DETERIORATION [None]
  - JAUNDICE [None]
  - MUSCULAR WEAKNESS [None]
  - NAUSEA [None]
  - OEDEMA PERIPHERAL [None]
  - SKIN ULCER [None]
  - VOMITING [None]
